FAERS Safety Report 16371095 (Version 2)
Quarter: 2019Q3

REPORT INFORMATION
  Report Type: Spontaneous
  Country: US (occurrence: US)
  Receive Date: 20190530
  Receipt Date: 20190705
  Transmission Date: 20191004
  Serious: No
  Sender: FDA-Public Use
  Company Number: US-009507513-1905USA003855

PATIENT
  Age: 47 Year
  Sex: Female

DRUGS (3)
  1. LINEZOLID. [Suspect]
     Active Substance: LINEZOLID
     Indication: MYCOBACTERIAL INFECTION
     Dosage: UNK
  2. CLARITHROMYCIN. [Suspect]
     Active Substance: CLARITHROMYCIN
     Indication: MYCOBACTERIAL INFECTION
     Dosage: UNK
  3. PRIMAXIN IV [Suspect]
     Active Substance: CILASTATIN SODIUM\IMIPENEM
     Indication: MYCOBACTERIAL INFECTION
     Dosage: UNK

REACTIONS (1)
  - Drug ineffective [Unknown]
